FAERS Safety Report 7356754-8 (Version None)
Quarter: 2011Q1

REPORT INFORMATION
  Report Type: 
  Country: None (occurrence: None)
  Receive Date: 20110316
  Receipt Date: 20110309
  Transmission Date: 20110831
  Serious: Yes (Hospitalization, Other)
  Sender: FDA-Public Use
  Company Number: US-MERCK-1007USA00207

PATIENT
  Age: 38 Year
  Sex: Female
  Weight: 58 kg

DRUGS (10)
  1. FOSAMAX [Suspect]
     Route: 048
  2. FOSAMAX [Suspect]
     Route: 048
  3. FOSAMAX PLUS D [Suspect]
     Indication: OSTEOPOROSIS
     Route: 048
     Dates: start: 20080601
  4. FOSAMAX PLUS D [Suspect]
     Indication: OSTEOPENIA
     Route: 048
     Dates: start: 20080601
  5. PLAQUENIL [Concomitant]
     Indication: SYSTEMIC LUPUS ERYTHEMATOSUS
     Route: 065
     Dates: start: 19920101
  6. VITAMINS (UNSPECIFIED) [Concomitant]
     Route: 065
  7. FOSAMAX [Suspect]
     Indication: OSTEOPENIA
     Route: 048
     Dates: start: 19950101, end: 20090101
  8. CALCIUM (UNSPECIFIED) [Concomitant]
     Route: 065
  9. FOSAMAX [Suspect]
     Indication: OSTEOPOROSIS
     Route: 048
     Dates: start: 19950101, end: 20090101
  10. PREDNISONE [Concomitant]
     Indication: SYSTEMIC LUPUS ERYTHEMATOSUS
     Route: 065
     Dates: start: 19920101

REACTIONS (44)
  - MALLORY-WEISS SYNDROME [None]
  - ARTIFICIAL MENOPAUSE [None]
  - GASTROINTESTINAL DISORDER [None]
  - BRONCHITIS [None]
  - FOOT FRACTURE [None]
  - FIBROMYALGIA [None]
  - DEPRESSION [None]
  - FEMUR FRACTURE [None]
  - DEEP VEIN THROMBOSIS [None]
  - DIZZINESS [None]
  - VAGINAL INFECTION [None]
  - LUMBAR SPINAL STENOSIS [None]
  - CONJUNCTIVITIS [None]
  - APPENDICECTOMY [None]
  - GASTROINTESTINAL HAEMORRHAGE [None]
  - INFECTION [None]
  - CROHN'S DISEASE [None]
  - PULMONARY EMBOLISM [None]
  - FALL [None]
  - RHEUMATOID ARTHRITIS [None]
  - PAIN [None]
  - CELLULITIS [None]
  - ANAEMIA OF CHRONIC DISEASE [None]
  - CYST [None]
  - HIATUS HERNIA [None]
  - SMALL INTESTINAL STENOSIS [None]
  - URINARY INCONTINENCE [None]
  - LUMBAR RADICULOPATHY [None]
  - HORMONE LEVEL ABNORMAL [None]
  - INTERVERTEBRAL DISC DEGENERATION [None]
  - SPINAL DISORDER [None]
  - FRACTURE DELAYED UNION [None]
  - COSTOCHONDRITIS [None]
  - BONE LESION [None]
  - CHOLECYSTECTOMY [None]
  - SYNOVIAL CYST [None]
  - RASH PRURITIC [None]
  - BACK PAIN [None]
  - BLADDER DISORDER [None]
  - RENAL CYST [None]
  - ADVERSE DRUG REACTION [None]
  - TOOTH FRACTURE [None]
  - OSTEOARTHRITIS [None]
  - ROAD TRAFFIC ACCIDENT [None]
